FAERS Safety Report 4677513-0 (Version None)
Quarter: 2005Q2

REPORT INFORMATION
  Report Type: 
  Country: None (occurrence: None)
  Receive Date: 20050526
  Receipt Date: 20050526
  Transmission Date: 20051028
  Serious: No
  Sender: FDA-Public Use
  Company Number: None

PATIENT
  Age: 58 Year
  Sex: Male
  Weight: 72 kg

DRUGS (1)
  1. QUININE 325MG QUALITEST [Suspect]
     Indication: MUSCLE SPASMS
     Dosage: 325MG HS PO
     Route: 048
     Dates: start: 20040427, end: 20050420

REACTIONS (2)
  - NAUSEA [None]
  - VOMITING [None]
